FAERS Safety Report 8423530-4 (Version None)
Quarter: 2012Q2

REPORT INFORMATION
  Report Type: 
  Country: None (occurrence: None)
  Receive Date: 20120608
  Receipt Date: 20120604
  Transmission Date: 20120825
  Serious: Yes (Death, Hospitalization)
  Sender: FDA-Public Use
  Company Number: JP-ROCHE-635121

PATIENT
  Sex: Female
  Weight: 44 kg

DRUGS (10)
  1. ACTEMRA [Suspect]
     Route: 041
     Dates: start: 20090217, end: 20090217
  2. ACTEMRA [Suspect]
     Indication: RHEUMATOID ARTHRITIS
     Route: 041
     Dates: start: 20090120, end: 20090120
  3. RHEUMATREX [Concomitant]
     Indication: RHEUMATOID ARTHRITIS
     Route: 048
  4. ACTEMRA [Suspect]
     Route: 041
     Dates: start: 20090401, end: 20090401
  5. ALFAROL [Concomitant]
     Indication: OSTEOPOROSIS
     Route: 048
  6. PREDNISOLONE AND PREDNISOLONE ACETATE AND PREDNISOLONE SODIUM SUCCINAT [Suspect]
     Route: 048
  7. MUCOSTA [Concomitant]
     Route: 048
  8. FAMOTIDINE [Concomitant]
     Indication: GASTROOESOPHAGEAL REFLUX DISEASE
     Route: 048
  9. PREDNISOLONE AND PREDNISOLONE ACETATE AND PREDNISOLONE SODIUM SUCCINAT [Suspect]
     Indication: RHEUMATOID ARTHRITIS
     Route: 048
  10. LOXONIN [Concomitant]
     Indication: RHEUMATOID ARTHRITIS
     Dosage: DRUG: LOXOPROFEN SODIUM
     Route: 048

REACTIONS (5)
  - POST PROCEDURAL INFECTION [None]
  - ARTHRITIS BACTERIAL [None]
  - PNEUMOCYSTIS JIROVECI PNEUMONIA [None]
  - INTERSTITIAL LUNG DISEASE [None]
  - BRONCHITIS [None]
